FAERS Safety Report 8138151-0 (Version None)
Quarter: 2012Q1

REPORT INFORMATION
  Report Type: 
  Country: None (occurrence: None)
  Receive Date: 20120215
  Receipt Date: 20120206
  Transmission Date: 20120608
  Serious: Yes (Other)
  Sender: FDA-Public Use
  Company Number: BR-ABBOTT-12P-020-0902222-00

PATIENT
  Sex: Female
  Weight: 89 kg

DRUGS (1)
  1. HUMIRA [Suspect]
     Indication: RHEUMATOID ARTHRITIS
     Route: 058
     Dates: start: 20080101, end: 20091001

REACTIONS (8)
  - PSEUDOMONAS INFECTION [None]
  - IMMUNODEFICIENCY [None]
  - INTERVERTEBRAL DISC PROTRUSION [None]
  - PROSTHESIS IMPLANTATION [None]
  - ARTHRITIS [None]
  - INFECTION [None]
  - ARTHRALGIA [None]
  - BLOOD PRESSURE INCREASED [None]
